FAERS Safety Report 23197821 (Version 1)
Quarter: 2023Q4

REPORT INFORMATION
  Report Type: Report from Study
  Country: FR (occurrence: FR)
  Receive Date: 20231117
  Receipt Date: 20231117
  Transmission Date: 20240110
  Serious: Yes (Other)
  Sender: FDA-Public Use
  Company Number: FR-JNJFOC-20231077108

PATIENT
  Age: 72 Year
  Sex: Female

DRUGS (4)
  1. DEXAMETHASONE [Suspect]
     Active Substance: DEXAMETHASONE
     Indication: Plasma cell myeloma
     Dosage: 20 MILLIGRAM, 0.5 WEEK (20 MG/DOSE 2 DOSES /WEEK 2 WEEK(S)/CYCLE)
     Route: 065
     Dates: end: 20210110
  2. LENALIDOMIDE [Suspect]
     Active Substance: LENALIDOMIDE
     Indication: Plasma cell myeloma
     Dosage: 25 MILLIGRAM, 0.14 WEEK (25 MG/DOSE 7 DOSES/WEEK 2 WEEK(S)/CYCLE)
     Route: 065
     Dates: end: 20210110
  3. LENALIDOMIDE [Suspect]
     Active Substance: LENALIDOMIDE
     Dosage: 10 MILLIGRAM, 0.14 WEEK (10 MG/DOSE 7 DOSE(S)/WEEK 3 WEEK(S)/CYCLE)20 MILLIGRAM, 0.5 WEEK
     Route: 065
  4. VELCADE [Suspect]
     Active Substance: BORTEZOMIB
     Indication: Plasma cell myeloma
     Dosage: 1.3 MILLIGRAM/SQ. METER, 0.5 WEEK (1.3 MG/M2/DOSE 2 DOSES/WEEK 2 WEEK(S)/CYCLE)
     Route: 065
     Dates: end: 20210110

REACTIONS (3)
  - Neuropathy peripheral [Unknown]
  - Intentional product use issue [Unknown]
  - Off label use [Unknown]
